FAERS Safety Report 9813521 (Version 2)
Quarter: 2014Q1

REPORT INFORMATION
  Report Type: Spontaneous
  Country: FR (occurrence: FR)
  Receive Date: 20140113
  Receipt Date: 20140210
  Transmission Date: 20141002
  Serious: Yes (Hospitalization)
  Sender: FDA-Public Use
  Company Number: FR-PFIZER INC-2014003066

PATIENT
  Age: 78 Year
  Sex: Male

DRUGS (15)
  1. ZYVOXID [Suspect]
     Dosage: 600 MG, 2X/DAY
     Route: 048
     Dates: start: 20130915, end: 20131022
  2. CANCIDAS [Concomitant]
  3. CLINDAMYCIN HYDROCHLORIDE [Concomitant]
  4. TIENAM [Concomitant]
  5. DOBUTAMINE HYDROCHLORIDE [Concomitant]
  6. NOREPINEPHRINE [Concomitant]
  7. FUROSEMIDE [Concomitant]
  8. ALFENTANIL [Concomitant]
  9. ATARAX [Concomitant]
  10. PROPOFOL [Concomitant]
  11. SUFENTA [Concomitant]
  12. PANTOPRAZOLE [Concomitant]
  13. SPASFON [Concomitant]
  14. FOLINIC ACID [Concomitant]
  15. VITAMIN K [Concomitant]

REACTIONS (1)
  - Pancreatitis [Recovered/Resolved]
